FAERS Safety Report 19715972 (Version 1)
Quarter: 2021Q3

REPORT INFORMATION
  Report Type: Spontaneous
  Country: US (occurrence: US)
  Receive Date: 20210818
  Receipt Date: 20210818
  Transmission Date: 20211014
  Serious: No
  Sender: FDA-Public Use
  Company Number: US-LOREAL USA PRODUCTS, INC.-2021LOR00001

PATIENT
  Age: 63 Year
  Sex: Female

DRUGS (6)
  1. LA ROCHE POSAY LAB. DERMATOLOGIQUE ANTHELIOS SX DAILY MOISTURIZING SUNSCREEN SPF 15 [Suspect]
     Active Substance: AVOBENZONE\ECAMSULE\OCTOCRYLENE
     Indication: DRY SKIN
     Dosage: UNK
  2. LA ROCHE POSAY LAB. DERMATOLOGIQUE ANTHELIOS SX DAILY MOISTURIZING SUNSCREEN SPF 15 [Suspect]
     Active Substance: AVOBENZONE\ECAMSULE\OCTOCRYLENE
     Dosage: UNK
     Dates: start: 20210111, end: 20210111
  3. AQUAPHOR [Concomitant]
     Active Substance: PETROLATUM
  4. PONDS COLD CREAM [Concomitant]
  5. LA ROCHE POSAY LAB. DERMATOLOGIQUE ANTHELIOS SX DAILY MOISTURIZING SUNSCREEN SPF 15 [Suspect]
     Active Substance: AVOBENZONE\ECAMSULE\OCTOCRYLENE
     Dosage: UNK
     Dates: start: 202011
  6. UNSPECIFIED VITAMINS [Concomitant]
     Active Substance: VITAMINS

REACTIONS (1)
  - Rash [Not Recovered/Not Resolved]

NARRATIVE: CASE EVENT DATE: 202011
